FAERS Safety Report 20675253 (Version 1)
Quarter: 2022Q2

REPORT INFORMATION
  Report Type: Spontaneous
  Country: US (occurrence: US)
  Receive Date: 20220405
  Receipt Date: 20220405
  Transmission Date: 20220721
  Serious: Yes (Death)
  Sender: FDA-Public Use
  Company Number: US-PROCTER_AND_GAMBLE-PH22003157

PATIENT

DRUGS (1)
  1. DIPHENHYDRAMINE HYDROCHLORIDE [Suspect]
     Active Substance: DIPHENHYDRAMINE HYDROCHLORIDE
     Dosage: UNK

REACTIONS (10)
  - Death [Fatal]
  - Suspected suicide [Fatal]
  - Coma [Unknown]
  - Drug abuse [Unknown]
  - Intentional product misuse [Unknown]
  - Intentional product use issue [Unknown]
  - Accidental exposure to product [Unknown]
  - Seizure [Unknown]
  - Cardiac disorder [Unknown]
  - Adverse reaction [Unknown]
